FAERS Safety Report 17909677 (Version 1)
Quarter: 2020Q2

REPORT INFORMATION
  Report Type: Spontaneous
  Country: IN (occurrence: IN)
  Receive Date: 20200617
  Receipt Date: 20200617
  Transmission Date: 20200714
  Serious: Yes (Hospitalization, Other)
  Sender: FDA-Public Use
  Company Number: IN-GLAXOSMITHKLINE-IN2020GSK096688

PATIENT
  Age: 15 Year
  Sex: Female

DRUGS (3)
  1. LAMOTRIGINE. [Interacting]
     Active Substance: LAMOTRIGINE
     Dosage: 50 MG
  2. VALPROATE SODIUM. [Interacting]
     Active Substance: VALPROATE SODIUM
     Indication: SEIZURE
     Dosage: 5 ML, BID
  3. LAMOTRIGINE. [Suspect]
     Active Substance: LAMOTRIGINE
     Indication: SEIZURE
     Dosage: 25 MG

REACTIONS (13)
  - Pyrexia [Recovering/Resolving]
  - Rash pruritic [Recovering/Resolving]
  - Chromaturia [Recovering/Resolving]
  - Skin lesion [Recovering/Resolving]
  - Full blood count abnormal [Recovered/Resolved]
  - Stevens-Johnson syndrome [Recovering/Resolving]
  - Anticonvulsant drug level increased [Recovered/Resolved]
  - Rash erythematous [Recovering/Resolving]
  - Blister [Recovering/Resolving]
  - Renal function test abnormal [Recovered/Resolved]
  - Urine output decreased [Recovering/Resolving]
  - Abnormal behaviour [Recovering/Resolving]
  - Drug interaction [Unknown]
